FAERS Safety Report 7158855-6 (Version None)
Quarter: 2010Q4

REPORT INFORMATION
  Report Type: 
  Country: None (occurrence: None)
  Receive Date: 20101214
  Receipt Date: 20100712
  Transmission Date: 20110411
  Serious: No
  Sender: FDA-Public Use
  Company Number: US-ASTRAZENECA-2010SE32515

PATIENT
  Age: 21145 Day
  Sex: Female
  Weight: 83.5 kg

DRUGS (14)
  1. CRESTOR [Suspect]
     Indication: HYPERCHOLESTEROLAEMIA
     Route: 048
  2. CRESTOR [Suspect]
     Route: 048
     Dates: start: 20070801
  3. TOPAMAX [Concomitant]
     Indication: MIGRAINE
  4. VERAPAMIL [Concomitant]
     Indication: MIGRAINE
  5. IMITREX [Concomitant]
     Indication: MIGRAINE
  6. ASACOL [Concomitant]
     Indication: IRRITABLE BOWEL SYNDROME
  7. FOLIC ACID [Concomitant]
     Indication: IRRITABLE BOWEL SYNDROME
  8. CLINDAMYCIN [Concomitant]
     Indication: ACNE
  9. RETIN-A [Concomitant]
     Indication: ACNE
  10. MERCAPTOPURINE [Concomitant]
     Indication: IRRITABLE BOWEL SYNDROME
  11. DARVOCET [Concomitant]
  12. CYMBALTA [Concomitant]
  13. LORAZEPAM [Concomitant]
  14. LUNESTA [Concomitant]

REACTIONS (4)
  - BACK PAIN [None]
  - HEPATIC ENZYME INCREASED [None]
  - MYALGIA [None]
  - PRURITUS [None]
